FAERS Safety Report 14976211 (Version 2)
Quarter: 2019Q2

REPORT INFORMATION
  Report Type: Spontaneous
  Country: US (occurrence: US)
  Receive Date: 20180605
  Receipt Date: 20190619
  Transmission Date: 20190711
  Serious: No
  Sender: FDA-Public Use
  Company Number: US-ROCHE-2052916

PATIENT
  Sex: Female

DRUGS (13)
  1. ZINC. [Concomitant]
     Active Substance: ZINC
  2. VITAMIN B12 [VITAMIN B12 NOS] [Concomitant]
     Active Substance: CYANOCOBALAMIN
  3. METOPROLOL SUCCINATE. [Concomitant]
     Active Substance: METOPROLOL SUCCINATE
  4. VITAMIN C [Concomitant]
     Active Substance: ASCORBIC ACID
  5. BOTOX [Concomitant]
     Active Substance: ONABOTULINUMTOXINA
  6. ACTEMRA [Suspect]
     Active Substance: TOCILIZUMAB
     Indication: RHEUMATOID ARTHRITIS
     Route: 042
  7. ACTEMRA [Suspect]
     Active Substance: TOCILIZUMAB
     Route: 042
     Dates: start: 20171019
  8. DEXILANT [Concomitant]
     Active Substance: DEXLANSOPRAZOLE
  9. HYDROCORTISONE. [Concomitant]
     Active Substance: HYDROCORTISONE
  10. GRALISE [Concomitant]
     Active Substance: GABAPENTIN
  11. VITAMIN D [VITAMIN D NOS] [Concomitant]
     Active Substance: VITAMIN D NOS
  12. CURCUMIN [Concomitant]
     Active Substance: CURCUMIN
  13. SULFASALAZINE. [Concomitant]
     Active Substance: SULFASALAZINE

REACTIONS (3)
  - Dizziness [Unknown]
  - Fatigue [Unknown]
  - Arthralgia [Unknown]
